FAERS Safety Report 4748513-7 (Version None)
Quarter: 2005Q3

REPORT INFORMATION
  Report Type: 
  Country: None (occurrence: None)
  Receive Date: 20050818
  Receipt Date: 20050808
  Transmission Date: 20060218
  Serious: Yes (Other)
  Sender: FDA-Public Use
  Company Number: 2005111662

PATIENT
  Age: 32 Year
  Sex: Female
  Weight: 61.2356 kg

DRUGS (1)
  1. UNISOM TABLETS (DIPHENHYDRAMINE) [Suspect]
     Indication: DEPRESSION
     Dosage: 9 TABS ONCE THEN 7 TABS ONCE, ORAL
     Route: 048
     Dates: start: 20050807, end: 20050808

REACTIONS (2)
  - FEELING ABNORMAL [None]
  - INTENTIONAL MISUSE [None]
